FAERS Safety Report 7135126-5 (Version None)
Quarter: 2010Q4

REPORT INFORMATION
  Report Type: 
  Country: None (occurrence: None)
  Receive Date: 20101119
  Receipt Date: 20101110
  Transmission Date: 20110411
  Serious: Yes (Other)
  Sender: FDA-Public Use
  Company Number: 20109638

PATIENT
  Sex: Male

DRUGS (1)
  1. LIORESAL [Suspect]
     Indication: MUSCLE SPASTICITY
     Dosage: 374 MCG, DAILY, INTRATHECAL
     Route: 037

REACTIONS (5)
  - CLONUS [None]
  - DRUG EFFECT DECREASED [None]
  - MUSCLE TIGHTNESS [None]
  - NIGHTMARE [None]
  - PRODUCT QUALITY ISSUE [None]
